FAERS Safety Report 7073757-1 (Version None)
Quarter: 2010Q4

REPORT INFORMATION
  Report Type: 
  Country: None (occurrence: None)
  Receive Date: 20101029
  Receipt Date: 20100803
  Transmission Date: 20110411
  Serious: No
  Sender: FDA-Public Use
  Company Number: A0875095A

PATIENT
  Sex: Male

DRUGS (3)
  1. ADVAIR DISKUS 100/50 [Suspect]
     Route: 055
  2. SALT WATER [Concomitant]
  3. LISTERINE [Concomitant]

REACTIONS (1)
  - ORAL CANDIDIASIS [None]
